FAERS Safety Report 4414214-8 (Version None)
Quarter: 2004Q2

REPORT INFORMATION
  Report Type: 
  Country: None (occurrence: None)
  Receive Date: 20040630
  Receipt Date: 20040525
  Transmission Date: 20050107
  Serious: No
  Sender: FDA-Public Use
  Company Number: 04P-163-0262005-00

PATIENT
  Age: 57 Year
  Sex: Female

DRUGS (4)
  1. HUMIRA [Suspect]
     Indication: RHEUMATOID ARTHRITIS
     Dosage: 40 MG, 1 IN 2 WK, SUBCUTANEOUS
     Route: 058
     Dates: start: 20040510
  2. HYDROXYCHLOROQUINE PHOSPHATE [Concomitant]
  3. ULTRACET [Concomitant]
  4. MELOXICAM [Concomitant]

REACTIONS (1)
  - DRUG INEFFECTIVE [None]
